FAERS Safety Report 9786759 (Version 3)
Quarter: 2014Q1

REPORT INFORMATION
  Report Type: Report from Study
  Country: JP (occurrence: JP)
  Receive Date: 20131227
  Receipt Date: 20140130
  Transmission Date: 20141002
  Serious: Yes (Death)
  Sender: FDA-Public Use
  Company Number: JP-TAKEDA-2013TUS003426

PATIENT
  Sex: 0

DRUGS (6)
  1. FEBURIC [Suspect]
     Indication: HYPERURICAEMIA
     Dosage: 10 MG, QD
     Route: 048
     Dates: start: 20120807, end: 20120820
  2. FEBURIC [Suspect]
     Dosage: 20 MG, QD
     Route: 048
     Dates: start: 20120821, end: 20121113
  3. MUCODYNE [Concomitant]
     Indication: BRONCHITIS CHRONIC
     Dosage: 750 MG, QD
     Route: 048
     Dates: start: 20120804, end: 20121113
  4. LUPRAC [Concomitant]
     Indication: CARDIAC FAILURE
     Dosage: 4 MG, QD
     Route: 048
     Dates: start: 20120804, end: 20121113
  5. FRANDOL S [Concomitant]
     Indication: ANGINA PECTORIS
     Dosage: 40 MG, QD
     Route: 062
     Dates: start: 20120804, end: 20121113
  6. HOKUNALIN:TAPE [Concomitant]
     Indication: BRONCHITIS CHRONIC
     Dosage: 2 MG, QD
     Route: 062
     Dates: start: 20120804, end: 20121113

REACTIONS (1)
  - Altered state of consciousness [Fatal]
